FAERS Safety Report 5271177-3 (Version None)
Quarter: 2007Q1

REPORT INFORMATION
  Report Type: 
  Country: None (occurrence: None)
  Receive Date: 20070315
  Receipt Date: 20070301
  Transmission Date: 20070707
  Serious: Yes (Hospitalization)
  Sender: FDA-Public Use
  Company Number: 237719

PATIENT
  Age: 41 Year
  Sex: 0

DRUGS (3)
  1. MABTHERA(RITUXIMAB) CONC FOR SOLUTION FOR INFUSION [Suspect]
     Indication: IDIOPATHIC THROMBOCYTOPENIC PURPURA
     Dosage: 375 MG, 1/WEEK, INTRAVENOUS
     Route: 042
  2. DEXAMETHASONE TAB [Concomitant]
  3. IVIG (GLOBULIN, IMMUNE) [Concomitant]

REACTIONS (5)
  - CHEST DISCOMFORT [None]
  - DISEASE RECURRENCE [None]
  - HEPATITIS ACUTE [None]
  - HYPOTENSION [None]
  - INFUSION RELATED REACTION [None]
